FAERS Safety Report 6037843-7 (Version None)
Quarter: 2009Q1

REPORT INFORMATION
  Report Type: 
  Country: None (occurrence: None)
  Receive Date: 20090115
  Receipt Date: 20090109
  Transmission Date: 20090719
  Serious: Yes (Hospitalization)
  Sender: FDA-Public Use
  Company Number: DE-RANBAXY-2009RR-20421

PATIENT
  Age: 83 Year
  Sex: Female
  Weight: 52 kg

DRUGS (8)
  1. AMLODIPINE BESYLATE [Suspect]
     Indication: HYPERTENSION
     Dosage: 5 MG, QD
     Route: 048
  2. ENALAPRIL MALEATE [Suspect]
     Indication: HYPERTENSION
     Dosage: 2.5 MG, QD
     Route: 048
  3. DIGITOXIN TAB [Suspect]
     Indication: CARDIAC FAILURE
     Dosage: 0.07 MG, QD
     Route: 048
  4. MOXONIDINE [Suspect]
     Dosage: 0.4 MG, QD
     Route: 048
  5. INDAPAMIDE [Suspect]
     Indication: HYPERTENSION
     Dosage: 1.5 MG, QD
     Route: 048
  6. ACTRAPHANE HM [Concomitant]
     Indication: TYPE 2 DIABETES MELLITUS
     Dosage: 20 IU, BID
     Route: 058
  7. FALITHROM HEXAL [Concomitant]
     Indication: ARRHYTHMIA PROPHYLAXIS
     Dosage: 1.5 MG, QD
     Route: 048
  8. SORTIS GOEDECKE [Concomitant]
     Indication: HYPERCHOLESTEROLAEMIA
     Dosage: 40 MG, QD
     Route: 048
     Dates: start: 20080601

REACTIONS (2)
  - BRADYCARDIA [None]
  - DRUG INTERACTION [None]
